FAERS Safety Report 7834892-0 (Version None)
Quarter: 2011Q4

REPORT INFORMATION
  Report Type: 
  Country: None (occurrence: None)
  Receive Date: 20111024
  Receipt Date: 20111011
  Transmission Date: 20120403
  Serious: Yes (Hospitalization, Other)
  Sender: FDA-Public Use
  Company Number: US-BAYER-2011-043976

PATIENT
  Age: 27 Year
  Sex: Female
  Weight: 75 kg

DRUGS (7)
  1. BUSPIRONE [Concomitant]
     Dosage: 15 MG, BID
     Route: 048
  2. YASMIN [Suspect]
     Indication: ORAL CONTRACEPTION
     Dosage: UNK
     Dates: start: 20060801, end: 20061001
  3. BUPROPION HYDROCHLORIDE [Concomitant]
     Dosage: 150 MG, BID
     Route: 048
  4. YAZ [Suspect]
     Indication: ORAL CONTRACEPTION
     Dosage: UNK
     Dates: start: 20080101, end: 20091101
  5. TRAZODONE HYDROCHLORIDE [Concomitant]
     Dosage: 300 MG, QD
     Route: 048
  6. SERTRALINE HYDROCHLORIDE [Concomitant]
     Dosage: 100 MG, BID
     Route: 048
  7. NEXIUM [Concomitant]

REACTIONS (10)
  - SCAR [None]
  - EMOTIONAL DISTRESS [None]
  - MENTAL DISORDER [None]
  - PAIN [None]
  - CHOLECYSTITIS CHRONIC [None]
  - GALLBLADDER DISORDER [None]
  - BILIARY DYSKINESIA [None]
  - INJURY [None]
  - FEAR [None]
  - ANXIETY [None]
